FAERS Safety Report 5085615-2 (Version None)
Quarter: 2006Q3

REPORT INFORMATION
  Report Type: 
  Country: None (occurrence: None)
  Receive Date: 20060822
  Receipt Date: 20060816
  Transmission Date: 20061208
  Serious: Yes (Hospitalization)
  Sender: FDA-Public Use
  Company Number: IT-GLAXOSMITHKLINE-B0434993A

PATIENT
  Age: 50 Year
  Sex: Male

DRUGS (3)
  1. AUGMENTIN [Suspect]
     Indication: ERYSIPELAS
     Dosage: 4G PER DAY
     Route: 048
     Dates: start: 20060620
  2. LEVOFLOXACIN [Suspect]
     Indication: ERYSIPELAS
     Dosage: 500MG PER DAY
     Route: 048
     Dates: start: 20060629
  3. KETOPROFEN [Concomitant]
     Dosage: 160MG PER DAY
     Route: 048
     Dates: start: 20060519

REACTIONS (2)
  - BLISTER [None]
  - ERYTHEMA MULTIFORME [None]
